FAERS Safety Report 5931938-1 (Version None)
Quarter: 2008Q4

REPORT INFORMATION
  Report Type: 
  Country: None (occurrence: None)
  Receive Date: 20081027
  Receipt Date: 20081020
  Transmission Date: 20090506
  Serious: Yes (Other)
  Sender: FDA-Public Use
  Company Number: PHHY2008JP22669

PATIENT
  Age: 43 Year
  Sex: Female

DRUGS (5)
  1. ZOMETA [Suspect]
     Indication: BREAST CANCER
     Route: 042
  2. TAXOTERE [Concomitant]
  3. FURTULON [Concomitant]
  4. HYSRON [Concomitant]
  5. TAMOXIFEN CITRATE [Concomitant]

REACTIONS (3)
  - PATHOLOGICAL FRACTURE [None]
  - PLEURAL EFFUSION [None]
  - SURGERY [None]
